FAERS Safety Report 12570087 (Version 4)
Quarter: 2017Q1

REPORT INFORMATION
  Report Type: Spontaneous
  Country: US (occurrence: US)
  Receive Date: 20160719
  Receipt Date: 20170215
  Transmission Date: 20170428
  Serious: Yes (Other)
  Sender: FDA-Public Use
  Company Number: US-TEVA-666670USA

PATIENT
  Age: 61 Year
  Sex: Female

DRUGS (10)
  1. MULTIVITAMIN [Concomitant]
     Active Substance: VITAMINS
  2. VITAMIN D [Concomitant]
     Active Substance: CHOLECALCIFEROL
  3. VITAMIN C [Concomitant]
     Active Substance: ASCORBIC ACID
  4. DEPAKOTE [Concomitant]
     Active Substance: DIVALPROEX SODIUM
  5. OMEPRAZOLE. [Concomitant]
     Active Substance: OMEPRAZOLE
  6. AMITRIPTYLINE [Concomitant]
     Active Substance: AMITRIPTYLINE
  7. L-THYROXINE [Concomitant]
     Active Substance: LEVOTHYROXINE
  8. PLAQUENIL [Concomitant]
     Active Substance: HYDROXYCHLOROQUINE SULFATE
  9. ZECUITY [Suspect]
     Active Substance: SUMATRIPTAN SUCCINATE
     Indication: MIGRAINE
     Route: 062
     Dates: start: 20160604
  10. ZECUITY [Suspect]
     Active Substance: SUMATRIPTAN SUCCINATE
     Route: 062
     Dates: start: 20160315

REACTIONS (16)
  - Application site burn [Recovered/Resolved]
  - Application site irritation [Recovered/Resolved]
  - Product adhesion issue [Unknown]
  - Application site pruritus [Recovered/Resolved]
  - Circumstance or information capable of leading to device use error [Unknown]
  - Application site paraesthesia [Recovered/Resolved]
  - Application site erythema [Recovered/Resolved]
  - Application site discolouration [Recovered/Resolved]
  - Application site rash [Recovered/Resolved]
  - Application site papules [Recovered/Resolved]
  - Rash [Recovered/Resolved]
  - Application site discomfort [Recovered/Resolved]
  - Application site pain [Recovered/Resolved]
  - Product colour issue [Unknown]
  - Application site warmth [Recovered/Resolved]
  - Product leakage [Unknown]

NARRATIVE: CASE EVENT DATE: 20160604
